FAERS Safety Report 5241633-2 (Version None)
Quarter: 2007Q1

REPORT INFORMATION
  Report Type: 
  Country: None (occurrence: None)
  Receive Date: 20070220
  Receipt Date: 20070214
  Transmission Date: 20070707
  Serious: Yes (Hospitalization)
  Sender: FDA-Public Use
  Company Number: AT-MERCK-0702AUT00006

PATIENT
  Age: 67 Year
  Sex: Female

DRUGS (4)
  1. EMEND [Suspect]
     Indication: PROPHYLAXIS OF NAUSEA AND VOMITING
     Route: 048
     Dates: start: 20070201, end: 20070201
  2. CARBOPLATIN AND DOCETAXEL [Suspect]
     Indication: OVARIAN CANCER
     Route: 065
     Dates: start: 20070201, end: 20070201
  3. DEXAMETHASONE [Concomitant]
     Route: 065
  4. [COMPOSITION UNSPECIFIED] [Concomitant]
     Route: 065

REACTIONS (4)
  - ANAPHYLACTIC REACTION [None]
  - APNOEA [None]
  - MUSCLE SPASMS [None]
  - RASH [None]
